FAERS Safety Report 9732870 (Version 1)
Quarter: 2013Q4

REPORT INFORMATION
  Report Type: Spontaneous
  Country: US (occurrence: US)
  Receive Date: 20131204
  Receipt Date: 20131204
  Transmission Date: 20140711
  Serious: No
  Sender: FDA-Public Use
  Company Number: US-GILEAD-2009-0021678

PATIENT
  Sex: Female
  Weight: 65.77 kg

DRUGS (15)
  1. LETAIRIS [Suspect]
     Indication: PULMONARY ARTERIAL HYPERTENSION
     Route: 048
     Dates: start: 20090314
  2. REVATIO [Concomitant]
  3. COUMADIN [Concomitant]
  4. ALDACTONE [Concomitant]
  5. BUMEX [Concomitant]
  6. ALBUTEROL [Concomitant]
  7. SPRIVA [Concomitant]
  8. PLAQUENIL [Concomitant]
  9. SYNTHROID [Concomitant]
  10. PREDNISONE [Concomitant]
  11. ACTIGALL [Concomitant]
  12. PILOCARPINE [Concomitant]
  13. PREVACID [Concomitant]
  14. CALTRATE [Concomitant]
  15. MULTIVITAMIN [Concomitant]

REACTIONS (4)
  - Malaise [Recovered/Resolved]
  - Headache [Recovered/Resolved]
  - Sinus headache [Recovered/Resolved]
  - Arthritis infective [Unknown]
